FAERS Safety Report 16664031 (Version 1)
Quarter: 2019Q3

REPORT INFORMATION
  Report Type: Spontaneous
  Country: US (occurrence: US)
  Receive Date: 20190802
  Receipt Date: 20190802
  Transmission Date: 20191004
  Serious: Yes (Other)
  Sender: FDA-Public Use
  Company Number: US-TEVA-2019-US-1085292

PATIENT
  Sex: Female

DRUGS (1)
  1. RIZATRIPTAN BENZOATE TEVA [Suspect]
     Active Substance: RIZATRIPTAN BENZOATE
     Dosage: 10 MG TABLET THEN REPEAT 2 HOURS LATER
     Route: 065

REACTIONS (8)
  - Oropharyngeal pain [Unknown]
  - Neck pain [Unknown]
  - Pain in jaw [Unknown]
  - Limb discomfort [Unknown]
  - Pain in extremity [Unknown]
  - Arthralgia [Unknown]
  - Muscle tightness [Unknown]
  - Throat tightness [Unknown]
